FAERS Safety Report 4433368-0 (Version None)
Quarter: 2004Q3

REPORT INFORMATION
  Report Type: 
  Country: None (occurrence: None)
  Receive Date: 20040820
  Receipt Date: 20040806
  Transmission Date: 20050211
  Serious: Yes (Congenital Anomaly)
  Sender: FDA-Public Use
  Company Number: B0341622A

PATIENT

DRUGS (1)
  1. RETROVIR [Suspect]
     Dosage: TRANSPLACENTARY
     Route: 064

REACTIONS (2)
  - CONGENITAL HYDRONEPHROSIS [None]
  - DRUG EXPOSURE DURING PREGNANCY [None]
